FAERS Safety Report 21494636 (Version 1)
Quarter: 2022Q4

REPORT INFORMATION
  Report Type: Spontaneous
  Country: CA (occurrence: CA)
  Receive Date: 20221021
  Receipt Date: 20221021
  Transmission Date: 20230112
  Serious: Yes (Other)
  Sender: FDA-Public Use
  Company Number: None

PATIENT
  Sex: Female

DRUGS (3)
  1. CITALOPRAM HYDROBROMIDE [Suspect]
     Active Substance: CITALOPRAM HYDROBROMIDE
     Indication: Secondary progressive multiple sclerosis
  2. DOMPERIDONE [Suspect]
     Active Substance: DOMPERIDONE
     Indication: Secondary progressive multiple sclerosis
     Dosage: UNK
     Route: 065
  3. MAYZENT [Suspect]
     Active Substance: SIPONIMOD
     Indication: Secondary progressive multiple sclerosis
     Route: 048

REACTIONS (3)
  - Nasopharyngitis [Unknown]
  - Electrocardiogram QT prolonged [Unknown]
  - Product use in unapproved indication [Unknown]
